FAERS Safety Report 16458196 (Version 1)
Quarter: 2019Q2

REPORT INFORMATION
  Report Type: Spontaneous
  Country: US (occurrence: US)
  Receive Date: 20190620
  Receipt Date: 20190620
  Transmission Date: 20190711
  Serious: No
  Sender: FDA-Public Use
  Company Number: US-TARO-2019TAR00416

PATIENT
  Sex: Female

DRUGS (6)
  1. SERTRALINE [Concomitant]
     Active Substance: SERTRALINE HYDROCHLORIDE
  2. OLMESARTAN [Concomitant]
     Active Substance: OLMESARTAN
  3. METRONIDAZOLE GEL USP, 1% [Suspect]
     Active Substance: METRONIDAZOLE
     Indication: ROSACEA
     Dosage: UNK, 1X/DAY AT NIGHT
     Route: 061
     Dates: end: 20190527
  4. BLACK COHOSH [Concomitant]
     Active Substance: BLACK COHOSH
     Dosage: UNK
  5. OMEPRAZOLE. [Concomitant]
     Active Substance: OMEPRAZOLE
  6. METRONIDAZOLE GEL USP, 1% [Suspect]
     Active Substance: METRONIDAZOLE
     Dosage: UNK, 1X/DAY AT NIGHT
     Route: 061
     Dates: start: 20190528

REACTIONS (4)
  - Drug ineffective [Recovered/Resolved]
  - Burning sensation [Recovering/Resolving]
  - Pruritus [Recovering/Resolving]
  - Expired product administered [Recovered/Resolved]
